FAERS Safety Report 6426468-7 (Version None)
Quarter: 2009Q4

REPORT INFORMATION
  Report Type: 
  Country: None (occurrence: None)
  Receive Date: 20091030
  Receipt Date: 20091022
  Transmission Date: 20100525
  Serious: Yes (Hospitalization)
  Sender: FDA-Public Use
  Company Number: 2009AL006769

PATIENT
  Age: 39 Year
  Sex: Female

DRUGS (2)
  1. CARBAMAZEPINE [Suspect]
     Indication: EPILEPSY
  2. TOPIRAMATE [Concomitant]

REACTIONS (10)
  - ANOSOGNOSIA [None]
  - ANXIETY [None]
  - APHASIA [None]
  - COMPLEX PARTIAL SEIZURES [None]
  - DEJA VU [None]
  - DEPRESSED LEVEL OF CONSCIOUSNESS [None]
  - DEPRESSED MOOD [None]
  - EMOTIONAL DISTRESS [None]
  - INSOMNIA [None]
  - PSYCHOTIC DISORDER [None]
